FAERS Safety Report 8175066-6 (Version None)
Quarter: 2012Q1

REPORT INFORMATION
  Report Type: 
  Country: None (occurrence: None)
  Receive Date: 20120229
  Receipt Date: 20120214
  Transmission Date: 20120608
  Serious: Yes (Hospitalization)
  Sender: FDA-Public Use
  Company Number: US-DX529-2012DX000030

PATIENT
  Age: 38 Year
  Sex: Male
  Weight: 108.41 kg

DRUGS (6)
  1. KALBITOR [Suspect]
     Indication: HEREDITARY ANGIOEDEMA
     Dates: start: 20120126, end: 20120126
  2. KALBITOR [Suspect]
     Dates: start: 20120131, end: 20120131
  3. KALBITOR [Suspect]
     Dates: start: 20120201, end: 20120201
  4. KALBITOR [Suspect]
     Dates: start: 20120201, end: 20120201
  5. KALBITOR [Suspect]
     Dates: start: 20120126, end: 20120126
  6. KALBITOR [Suspect]
     Dates: start: 20120131, end: 20120131

REACTIONS (6)
  - SPEECH DISORDER [None]
  - THROAT TIGHTNESS [None]
  - SINUSITIS [None]
  - INAPPROPRIATE SCHEDULE OF DRUG ADMINISTRATION [None]
  - OROPHARYNGEAL PAIN [None]
  - HEREDITARY ANGIOEDEMA [None]
